FAERS Safety Report 9203719 (Version 2)
Quarter: 2013Q2

REPORT INFORMATION
  Report Type: Spontaneous
  Country: US (occurrence: US)
  Receive Date: 20130402
  Receipt Date: 20130503
  Transmission Date: 20140414
  Serious: Yes (Hospitalization, Other)
  Sender: FDA-Public Use
  Company Number: US-BAYER-2013-037962

PATIENT
  Age: 29 Year
  Sex: Female

DRUGS (7)
  1. YASMIN [Suspect]
  2. PROCRIT [Concomitant]
  3. FOLATE SODIUM [Concomitant]
  4. FERRLECIT [Concomitant]
  5. ERYTHROPOIETIN [Concomitant]
  6. IRON [Concomitant]
  7. YAZ [Suspect]
     Dosage: UNK
     Dates: start: 20060528, end: 20060604

REACTIONS (12)
  - Deep vein thrombosis [None]
  - Vena cava thrombosis [None]
  - Pelvic venous thrombosis [None]
  - Deep vein thrombosis [None]
  - Emotional distress [None]
  - Anhedonia [None]
  - Pain [None]
  - Injury [None]
  - General physical health deterioration [None]
  - Anxiety [None]
  - Pain [None]
  - Local swelling [None]
